FAERS Safety Report 8374073-8 (Version None)
Quarter: 2012Q2

REPORT INFORMATION
  Report Type: 
  Country: None (occurrence: None)
  Receive Date: 20120518
  Receipt Date: 20120518
  Transmission Date: 20120825
  Serious: Yes (Life-Threatening, Other)
  Sender: FDA-Public Use
  Company Number: None

PATIENT
  Sex: Male
  Weight: 67.8128 kg

DRUGS (1)
  1. FOSAMAX [Suspect]
     Indication: OSTEOPENIA
     Dosage: 1/WK 19 MONTHS ORAL
     Route: 048
     Dates: start: 20100620, end: 20120405

REACTIONS (2)
  - POST PROCEDURAL INFECTION [None]
  - LOOSE TOOTH [None]
